FAERS Safety Report 12771654 (Version 4)
Quarter: 2021Q2

REPORT INFORMATION
  Report Type: Report from Study
  Country: PL (occurrence: PL)
  Receive Date: 20160922
  Receipt Date: 20210601
  Transmission Date: 20210716
  Serious: Yes (Death, Hospitalization, Other)
  Sender: FDA-Public Use
  Company Number: PL-ARIAD PHARMACEUTICALS, INC-2016PL006990

PATIENT
  Age: 62 Year
  Sex: Female

DRUGS (11)
  1. PONATINIB [Suspect]
     Active Substance: PONATINIB
     Indication: PHILADELPHIA POSITIVE CHRONIC MYELOID LEUKAEMIA
     Dosage: 22.5 MILLIGRAM, QD
     Route: 048
     Dates: start: 201604, end: 20160605
  2. PONATINIB [Suspect]
     Active Substance: PONATINIB
     Indication: BLAST CRISIS IN MYELOGENOUS LEUKAEMIA
     Dosage: 45 MILLIGRAM, QD
     Route: 048
     Dates: start: 20160311, end: 201604
  3. PONATINIB [Suspect]
     Active Substance: PONATINIB
     Dosage: 22.5 MILLIGRAM
     Route: 048
     Dates: start: 201610
  4. CYCLOSPORIN A [Concomitant]
     Active Substance: CYCLOSPORINE
     Indication: PROPHYLAXIS AGAINST GRAFT VERSUS HOST DISEASE
     Dosage: UNK
     Route: 065
  5. PONATINIB [Suspect]
     Active Substance: PONATINIB
     Dosage: 15 MILLIGRAM, QD
     Route: 048
  6. PONATINIB [Suspect]
     Active Substance: PONATINIB
     Dosage: 45 MILLIGRAM, QD
     Route: 048
  7. PONATINIB [Suspect]
     Active Substance: PONATINIB
     Indication: TYROSINE KINASE MUTATION
     Dosage: 15 MILLIGRAM, QD
     Route: 048
     Dates: start: 20160606, end: 201608
  8. BUSULFAN. [Concomitant]
     Active Substance: BUSULFAN
     Indication: BONE MARROW CONDITIONING REGIMEN
     Dosage: UNK
     Route: 065
  9. PONATINIB [Suspect]
     Active Substance: PONATINIB
     Dosage: 30 MILLIGRAM, QD
     Route: 048
  10. FLUDARABINE [Concomitant]
     Active Substance: FLUDARABINE PHOSPHATE
     Indication: BONE MARROW CONDITIONING REGIMEN
     Dosage: UNK
     Route: 065
  11. 5?AZACYTIDINE [Concomitant]
     Active Substance: AZACITIDINE
     Indication: PRODUCT USED FOR UNKNOWN INDICATION
     Dosage: UNK
     Route: 065

REACTIONS (16)
  - Intentional product misuse [Unknown]
  - Blast crisis in myelogenous leukaemia [Fatal]
  - Neutropenia [Unknown]
  - Acute graft versus host disease [Unknown]
  - Cytomegalovirus infection reactivation [Unknown]
  - Haemolysis [Unknown]
  - Pancytopenia [Unknown]
  - Disease progression [Fatal]
  - Complications of bone marrow transplant [Fatal]
  - Anaemia [Unknown]
  - Febrile neutropenia [Unknown]
  - Systemic mycosis [Unknown]
  - Alanine aminotransferase increased [Unknown]
  - Thrombocytopenia [Unknown]
  - Microangiopathy [Unknown]
  - Lipase increased [Unknown]

NARRATIVE: CASE EVENT DATE: 201604
